FAERS Safety Report 19004940 (Version 1)
Quarter: 2021Q1

REPORT INFORMATION
  Report Type: Spontaneous
  Country: US (occurrence: US)
  Receive Date: 20210313
  Receipt Date: 20210313
  Transmission Date: 20210420
  Serious: No
  Sender: FDA-Public Use
  Company Number: US-JNJFOC-20210305548

PATIENT
  Sex: Female

DRUGS (1)
  1. WOMENS ROGAINE UNSCENTED [Suspect]
     Active Substance: MINOXIDIL
     Indication: ALOPECIA
     Dosage: DOSE: 3/4 CAPFUL?LAST ADMINISTRATION ON: 01?MARCH?2021
     Route: 061
     Dates: start: 2006

REACTIONS (2)
  - Alopecia [Unknown]
  - Overdose [Unknown]
